FAERS Safety Report 16726334 (Version 1)
Quarter: 2019Q3

REPORT INFORMATION
  Report Type: Spontaneous
  Country: US (occurrence: US)
  Receive Date: 20190821
  Receipt Date: 20190821
  Transmission Date: 20191005
  Serious: Yes (Disabling)
  Sender: FDA-Public Use
  Company Number: US-TEVA-2019-US-1094828

PATIENT

DRUGS (1)
  1. VALSARTAN. [Suspect]
     Active Substance: VALSARTAN
     Indication: HYPERTENSION
     Dosage: BETWEEN APPROXIMATELY 04-JAN-2016 AND 25-SEP- 2018,
     Route: 065

REACTIONS (2)
  - Renal cancer [Not Recovered/Not Resolved]
  - Recalled product administered [Unknown]
